FAERS Safety Report 20611574 (Version 1)
Quarter: 2022Q1

REPORT INFORMATION
  Report Type: Spontaneous
  Country: TW (occurrence: TW)
  Receive Date: 20220318
  Receipt Date: 20220318
  Transmission Date: 20220423
  Serious: Yes (Other)
  Sender: FDA-Public Use
  Company Number: TW-PFIZER INC-202200392037

PATIENT
  Sex: Male

DRUGS (2)
  1. VIAGRA [Suspect]
     Active Substance: SILDENAFIL CITRATE
     Dosage: UNK
     Route: 048
  2. CIALIS [Suspect]
     Active Substance: TADALAFIL
     Dosage: EVERY MORNING
     Route: 048

REACTIONS (2)
  - Hyperprolactinaemia [Unknown]
  - Pituitary tumour [Unknown]
